FAERS Safety Report 9233556 (Version 3)
Quarter: 2014Q1

REPORT INFORMATION
  Report Type: Report from Study
  Country: JP (occurrence: JP)
  Receive Date: 20130416
  Receipt Date: 20140307
  Transmission Date: 20141002
  Serious: No
  Sender: FDA-Public Use
  Company Number: JP-009507513-1304JPN007193

PATIENT
  Age: 65 Year
  Sex: Male
  Weight: 53 kg

DRUGS (20)
  1. REBETOL [Suspect]
     Indication: CHRONIC HEPATITIS C
     Dosage: DAILY DOSE UNKNOWN, 200MG IN THE MORNING AND 400MG IN THE EVENING,BID
     Route: 048
     Dates: start: 20110119, end: 20110713
  2. REBETOL [Suspect]
     Dosage: 200 MG, BID
     Route: 048
     Dates: start: 20110714, end: 20111003
  3. FERON [Suspect]
     Indication: CHRONIC HEPATITIS C
     Dosage: 600 MILLION IU, QD
     Route: 041
     Dates: start: 20110119, end: 20110130
  4. FERON [Suspect]
     Dosage: 6 MILLION IU, 3 TIMES A WEEK,SEPARATE NO:3
     Route: 041
     Dates: start: 20110131, end: 20110220
  5. FERON [Suspect]
     Dosage: 6 MILLION IU, 2 TIMES A WEEK,SEPARATE NO: 2
     Route: 041
     Dates: start: 20110221, end: 20110321
  6. FERON [Suspect]
     Dosage: 3 MILLION IU, 3 TIMES A WEEK,SEPARATE NO:3
     Route: 041
     Dates: start: 20110322, end: 20110424
  7. FERON [Suspect]
     Dosage: 3 MILLION IU, 2 TIMES A WEEK,SEPARATE NO:3
     Route: 041
     Dates: start: 20110425, end: 20110508
  8. FERON [Suspect]
     Dosage: 3 MILLION IU, 3 TIMES A WEEK,SEPARATE NO:3
     Route: 041
     Dates: start: 20110509, end: 20110710
  9. FERON [Suspect]
     Dosage: 3 MILLION IU,1-3TIMES/WEEK
     Route: 041
     Dates: start: 20110711, end: 20111003
  10. URSO [Concomitant]
     Indication: CHRONIC HEPATITIS C
     Dosage: 300 MG, QD
     Route: 048
  11. NEO-MINOPHAGEN C [Concomitant]
     Indication: CHRONIC HEPATITIS C
     Dosage: 40 ML, QW SEPARATE NO.:3
     Route: 041
  12. PARIET [Concomitant]
     Indication: GASTRITIS PROPHYLAXIS
     Dosage: 10 MG, QD
     Dates: start: 20110118, end: 20120511
  13. ALESION [Concomitant]
     Indication: SEASONAL ALLERGY
     Dosage: 20 MG, QD
     Route: 048
     Dates: end: 20110609
  14. MEXITIL [Concomitant]
     Indication: ARRHYTHMIA
     Dosage: 200 MG, QD
     Route: 048
  15. PYRINAZIN [Concomitant]
     Indication: PYREXIA
     Dosage: 0.8 G, QD
     Route: 048
     Dates: start: 20110124, end: 20110414
  16. MAGMITT [Concomitant]
     Indication: CONSTIPATION PROPHYLAXIS
     Dosage: 990 MG, QD
     Route: 048
     Dates: start: 20110210
  17. LOXONIN [Concomitant]
     Indication: PYREXIA
     Dosage: 60 MG, TOOK A DOSAGE OF THE MEDICINE AT THE ONSET OF FEVER
     Route: 048
     Dates: start: 20110303, end: 20111006
  18. LENDORMIN [Concomitant]
     Indication: INSOMNIA
     Dosage: 0.25 MG, QD
     Route: 048
     Dates: start: 20110512, end: 20111011
  19. GASTER D [Concomitant]
     Indication: GASTRITIS PROPHYLAXIS
     Dosage: 20 MG, QD
     Route: 048
     Dates: start: 20110609
  20. PL-GRANULES [Concomitant]
     Indication: UPPER RESPIRATORY TRACT INFLAMMATION
     Dosage: 3 G, QD
     Route: 048
     Dates: start: 20110221, end: 20110228

REACTIONS (14)
  - Dizziness postural [Recovered/Resolved]
  - Pyrexia [Recovered/Resolved]
  - Insomnia [Not Recovered/Not Resolved]
  - Upper respiratory tract inflammation [Recovered/Resolved]
  - Dyspnoea [Recovering/Resolving]
  - White blood cell count decreased [Recovering/Resolving]
  - Anaemia [Recovering/Resolving]
  - Dyspnoea [Recovered/Resolved]
  - Malaise [Recovered/Resolved]
  - Protein total decreased [Recovered/Resolved]
  - Anaemia [Recovered/Resolved]
  - Platelet count decreased [Recovered/Resolved]
  - Neutrophil count decreased [Recovered/Resolved]
  - Band neutrophil percentage decreased [Recovered/Resolved]
